FAERS Safety Report 9375894 (Version 2)
Quarter: 2013Q4

REPORT INFORMATION
  Report Type: Spontaneous
  Country: US (occurrence: US)
  Receive Date: 20130628
  Receipt Date: 20131213
  Transmission Date: 20140711
  Serious: Yes (Death, Hospitalization)
  Sender: FDA-Public Use
  Company Number: US-B.I. PHARMACEUTICALS,INC./RIDGEFIELD-2013-BI-18565BP

PATIENT
  Sex: Female
  Weight: 71.21 kg

DRUGS (18)
  1. PRADAXA [Suspect]
     Indication: ANTICOAGULANT THERAPY
     Dosage: 300 MG
     Dates: start: 20111019, end: 20111125
  2. PRADAXA [Suspect]
     Indication: ATRIAL FIBRILLATION
  3. PREDNISONE [Concomitant]
     Dosage: 10 MG
  4. ADULT LOW STRENGTH [Concomitant]
  5. CAL-600 [Concomitant]
  6. PILOCARPINE [Concomitant]
  7. FEMHRT [Concomitant]
     Dosage: 5 MG
     Route: 048
  8. FERROUS SULFATE [Concomitant]
  9. LASIX [Concomitant]
     Dosage: 40 MG
  10. GABAPENTIN [Concomitant]
  11. KLOR-10 [Concomitant]
  12. LIPITOR [Concomitant]
     Dosage: 20 MG
     Route: 048
  13. MAGNESIUM [Concomitant]
     Dosage: 400 MG
     Route: 048
  14. METOLAZONE [Concomitant]
     Dosage: 2.5 MG
     Route: 048
  15. LOPRESSOR [Concomitant]
     Dosage: 25 MG
     Route: 048
  16. PLAVIX [Concomitant]
     Dosage: 75 MG
     Route: 048
  17. XANAX [Concomitant]
     Dosage: 0.25 MG
     Route: 048
  18. OXYGEN [Concomitant]

REACTIONS (8)
  - Gastrointestinal haemorrhage [Fatal]
  - Acute respiratory failure [Fatal]
  - Pneumonia [Fatal]
  - Sepsis [Fatal]
  - Septic shock [Fatal]
  - Multi-organ failure [Fatal]
  - Anaemia [Unknown]
  - Renal failure acute [Unknown]
